FAERS Safety Report 9988046 (Version 2)
Quarter: 2014Q1

REPORT INFORMATION
  Report Type: Spontaneous
  Country: CA (occurrence: CA)
  Receive Date: 20140308
  Receipt Date: 20140313
  Transmission Date: 20141002
  Serious: Yes (Other)
  Sender: FDA-Public Use
  Company Number: CA-ROCHE-1360973

PATIENT
  Sex: Female

DRUGS (12)
  1. CYTOVENE [Suspect]
     Indication: ORGAN TRANSPLANT
     Route: 042
     Dates: start: 20140217
  2. CYTOVENE [Suspect]
     Route: 042
     Dates: start: 20140227, end: 20140304
  3. VALCYTE [Suspect]
     Indication: ORGAN TRANSPLANT
     Route: 048
     Dates: start: 20140220, end: 20140227
  4. MYCOPHENOLATE MOFETIL [Concomitant]
     Indication: ORGAN TRANSPLANT
     Route: 065
     Dates: start: 2014
  5. SEPTRA [Concomitant]
     Indication: ORGAN TRANSPLANT
     Route: 065
     Dates: start: 2014
  6. VORICONAZOLE [Concomitant]
     Indication: ORGAN TRANSPLANT
     Route: 065
     Dates: start: 2014
  7. TIGECYCLINE [Concomitant]
  8. CEFTAZIDIME [Concomitant]
  9. AMIKACIN [Concomitant]
  10. COLISTIN [Concomitant]
  11. TACROLIMUS [Concomitant]
     Route: 048
     Dates: start: 20140301
  12. PREDNISONE [Concomitant]
     Indication: ORGAN TRANSPLANT
     Route: 065
     Dates: start: 2014

REACTIONS (1)
  - Hyperammonaemia [Recovered/Resolved]
